FAERS Safety Report 5926950-2 (Version None)
Quarter: 2008Q4

REPORT INFORMATION
  Report Type: 
  Country: None (occurrence: None)
  Receive Date: 20081021
  Receipt Date: 20081021
  Transmission Date: 20090506
  Serious: Yes (Hospitalization)
  Sender: FDA-Public Use
  Company Number: None

PATIENT
  Sex: Female
  Weight: 61.7 kg

DRUGS (2)
  1. CARBOPLATIN [Suspect]
     Dosage: 1212 MG
     Dates: start: 20081008, end: 20081008
  2. TAXOL [Suspect]
     Dosage: 588 MG
     Dates: end: 20081008

REACTIONS (4)
  - DIARRHOEA [None]
  - NAUSEA [None]
  - NEUTROPENIA [None]
  - VOMITING [None]
